FAERS Safety Report 18368149 (Version 3)
Quarter: 2020Q4

REPORT INFORMATION
  Report Type: Report from Study
  Country: BR (occurrence: BR)
  Receive Date: 20201009
  Receipt Date: 20201030
  Transmission Date: 20210114
  Serious: Yes (Other)
  Sender: FDA-Public Use
  Company Number: NVSC2020BR270848

PATIENT
  Sex: Female
  Weight: 58 kg

DRUGS (3)
  1. ONBRIZE [Suspect]
     Active Substance: INDACATEROL MALEATE
     Indication: EMPHYSEMA
     Dosage: 1 DF, QD, ABOUT 11 YERAS AGO AND STOP ABOUT THREE YEARS AGO
     Route: 048
  2. FORASEQ [Suspect]
     Active Substance: BUDESONIDE\FORMOTEROL FUMARATE
     Indication: EMPHYSEMA
     Dosage: UNK, TWELVE YEARS AGO
     Route: 065
  3. ULTIBRO [Suspect]
     Active Substance: GLYCOPYRRONIUM\INDACATEROL
     Indication: EMPHYSEMA
     Dosage: 1 DF, QD,(110 MCG+50 MCG) TWO WEEKS AGO
     Route: 048
     Dates: start: 202010

REACTIONS (3)
  - Condition aggravated [Unknown]
  - Emphysema [Unknown]
  - Dyspnoea [Recovering/Resolving]

NARRATIVE: CASE EVENT DATE: 2020
